FAERS Safety Report 13535319 (Version 1)
Quarter: 2017Q2

REPORT INFORMATION
  Report Type: Spontaneous
  Country: US (occurrence: US)
  Receive Date: 20170511
  Receipt Date: 20170511
  Transmission Date: 20170830
  Serious: No
  Sender: FDA-Public Use
  Company Number: US-FERRINGPH-2016FE05099

PATIENT
  Age: 30 Year
  Sex: Female
  Weight: 97.52 kg

DRUGS (2)
  1. CERVIDIL [Suspect]
     Active Substance: DINOPROSTONE
     Indication: LABOUR INDUCTION
     Dosage: UNK, ONCE/SINGLE
     Route: 067
     Dates: start: 20121119, end: 20121119
  2. PRENATAL VITAMINS                  /02014401/ [Concomitant]
     Active Substance: VITAMINS
     Indication: PRODUCT USED FOR UNKNOWN INDICATION
     Route: 065

REACTIONS (5)
  - Vaginal haemorrhage [Not Recovered/Not Resolved]
  - Menorrhagia [Not Recovered/Not Resolved]
  - Polyp [Recovered/Resolved]
  - Cervix inflammation [Not Recovered/Not Resolved]
  - Cervix haemorrhage uterine [Not Recovered/Not Resolved]

NARRATIVE: CASE EVENT DATE: 201211
